FAERS Safety Report 4796719-3 (Version None)
Quarter: 2005Q4

REPORT INFORMATION
  Report Type: 
  Country: None (occurrence: None)
  Receive Date: 20051007
  Receipt Date: 20050802
  Transmission Date: 20060501
  Serious: No
  Sender: FDA-Public Use
  Company Number: PAR_0204_2005

PATIENT
  Age: 64 Year
  Sex: Male

DRUGS (7)
  1. ISOPTIN [Suspect]
     Indication: ATRIAL FIBRILLATION
     Dosage: 240 MG QDAY PO
     Route: 048
     Dates: start: 20050728
  2. LISINOPRIL [Concomitant]
  3. ORAL ANTICOAGULANTIC [Concomitant]
  4. ORAL ANTIDIABETICS [Concomitant]
  5. DIURETICS [Concomitant]
  6. PANODIL P.N. [Concomitant]
  7. KODEIN P.N. [Concomitant]

REACTIONS (1)
  - CONSTIPATION [None]
